FAERS Safety Report 8365256-1 (Version None)
Quarter: 2012Q2

REPORT INFORMATION
  Report Type: 
  Country: None (occurrence: None)
  Receive Date: 20120516
  Receipt Date: 20120502
  Transmission Date: 20120825
  Serious: Yes (Death, Life-Threatening, Hospitalization, Other)
  Sender: FDA-Public Use
  Company Number: US-MYLANLABS-2008AL011092

PATIENT
  Sex: Male
  Weight: 88.6 kg

DRUGS (20)
  1. DIGOXIN [Suspect]
     Indication: CARDIAC FAILURE CONGESTIVE
     Route: 048
     Dates: start: 20070402, end: 20080424
  2. BUMEX [Concomitant]
     Route: 048
  3. LOTREL [Concomitant]
     Dosage: 5/10
     Route: 048
  4. ALLOPURINOL [Concomitant]
  5. CARDIZEM CD [Concomitant]
     Route: 048
  6. COREG CR [Concomitant]
     Route: 048
  7. HYTRIN [Concomitant]
     Route: 048
  8. NORVASC [Concomitant]
     Route: 048
  9. WARFARIN SODIUM [Concomitant]
  10. METFORMIN HCL [Concomitant]
  11. CARDIZEM CD [Concomitant]
     Route: 048
  12. COREG [Concomitant]
     Route: 048
  13. COLCHICINE [Concomitant]
     Route: 048
  14. DIGOXIN [Suspect]
     Indication: ATRIAL FIBRILLATION
     Route: 048
     Dates: start: 20070402, end: 20080424
  15. ZOCOR [Concomitant]
     Route: 048
  16. AVAPRO [Concomitant]
     Route: 048
  17. LASIX [Concomitant]
  18. AMLODIPINE BESYLATE [Concomitant]
  19. POTASSIUM CHLORIDE [Concomitant]
     Route: 048
  20. ZANTAC [Concomitant]
     Route: 048

REACTIONS (47)
  - CARDIAC FAILURE CONGESTIVE [None]
  - VOMITING [None]
  - HYPERHIDROSIS [None]
  - HYPERTENSION [None]
  - VENTRICULAR HYPOKINESIA [None]
  - TRICUSPID VALVE INCOMPETENCE [None]
  - INJURY [None]
  - ILL-DEFINED DISORDER [None]
  - RALES [None]
  - ATRIAL FIBRILLATION [None]
  - VENTRICULAR FIBRILLATION [None]
  - CEREBROVASCULAR ACCIDENT [None]
  - MITRAL VALVE INCOMPETENCE [None]
  - TOXICITY TO VARIOUS AGENTS [None]
  - ANHEDONIA [None]
  - IRRITABILITY [None]
  - HYPOXIC-ISCHAEMIC ENCEPHALOPATHY [None]
  - MECHANICAL VENTILATION [None]
  - DYSKINESIA [None]
  - CARDIOMYOPATHY [None]
  - LUNG INFILTRATION [None]
  - GASTROINTESTINAL TUBE INSERTION [None]
  - MITRAL VALVE DISEASE [None]
  - DEATH [None]
  - ACUTE MYOCARDIAL INFARCTION [None]
  - ATELECTASIS [None]
  - HEART RATE IRREGULAR [None]
  - LEFT ATRIAL DILATATION [None]
  - CARDIOMEGALY [None]
  - EJECTION FRACTION DECREASED [None]
  - FATIGUE [None]
  - CARDIAC ARREST [None]
  - PAIN [None]
  - CREPITATIONS [None]
  - CORONARY ARTERY DISEASE [None]
  - ENDOTRACHEAL INTUBATION [None]
  - TREATMENT NONCOMPLIANCE [None]
  - BRAIN INJURY [None]
  - HEART SOUNDS ABNORMAL [None]
  - ECONOMIC PROBLEM [None]
  - ANXIETY [None]
  - EMOTIONAL DISTRESS [None]
  - RHONCHI [None]
  - RESPIRATORY FAILURE [None]
  - VENTRICULAR DYSFUNCTION [None]
  - CARDIAC MURMUR [None]
  - MYOCARDIAL INFARCTION [None]
